FAERS Safety Report 8383664-X (Version None)
Quarter: 2012Q2

REPORT INFORMATION
  Report Type: 
  Country: None (occurrence: None)
  Receive Date: 20120524
  Receipt Date: 20120517
  Transmission Date: 20120825
  Serious: Yes (Hospitalization)
  Sender: FDA-Public Use
  Company Number: US-UCBSA-057670

PATIENT
  Age: 56 Year
  Sex: Female

DRUGS (2)
  1. MERCAPTOPURINE [Concomitant]
     Indication: CROHN'S DISEASE
  2. CIMZIA [Suspect]
     Indication: CROHN'S DISEASE
     Dates: start: 20120201

REACTIONS (8)
  - ERYTHEMA [None]
  - INFLUENZA [None]
  - VOMITING [None]
  - LUNG INFECTION [None]
  - PYREXIA [None]
  - MYALGIA [None]
  - LYMPHADENOPATHY [None]
  - LOCAL SWELLING [None]
